FAERS Safety Report 11110874 (Version 1)
Quarter: 2015Q2

REPORT INFORMATION
  Report Type: Spontaneous
  Country: US (occurrence: US)
  Receive Date: 20150513
  Receipt Date: 20150513
  Transmission Date: 20150821
  Serious: No
  Sender: FDA-Public Use
  Company Number: US-PFIZER INC-2015158239

PATIENT
  Age: 79 Year
  Sex: Female
  Weight: 43 kg

DRUGS (3)
  1. TOLTERODINE TARTRATE. [Suspect]
     Active Substance: TOLTERODINE TARTRATE
     Dosage: 4 MG, UNK
     Route: 048
     Dates: end: 2015
  2. CLARITIN [Suspect]
     Active Substance: LORATADINE
     Dosage: UNK
     Dates: end: 2015
  3. ZYRTEC [Suspect]
     Active Substance: CETIRIZINE HYDROCHLORIDE
     Dosage: UNK
     Dates: end: 2015

REACTIONS (1)
  - Amnesia [Recovering/Resolving]
